FAERS Safety Report 20015531 (Version 1)
Quarter: 2021Q4

REPORT INFORMATION
  Report Type: Spontaneous
  Country: US (occurrence: None)
  Receive Date: 20211029
  Receipt Date: 20211029
  Transmission Date: 20220303
  Serious: Yes (Hospitalization)
  Sender: FDA-Public Use
  Company Number: None

PATIENT
  Sex: Female

DRUGS (1)
  1. METHOTREXATE SODIUM [Suspect]
     Active Substance: METHOTREXATE SODIUM
     Indication: Cutaneous T-cell lymphoma
     Dosage: OTHER FREQUENCY : MON+THUR;?
     Route: 030
     Dates: start: 20210921

REACTIONS (1)
  - Hospitalisation [None]
